FAERS Safety Report 12248434 (Version 1)
Quarter: 2016Q2

REPORT INFORMATION
  Report Type: Spontaneous
  Country: US (occurrence: None)
  Receive Date: 20160407
  Receipt Date: 20160407
  Transmission Date: 20160815
  Serious: Yes (Other)
  Sender: FDA-Public Use
  Company Number: None

PATIENT
  Age: 34 Year
  Sex: Female
  Weight: 81.65 kg

DRUGS (1)
  1. CEPHALEXIN. [Suspect]
     Active Substance: CEPHALEXIN
     Indication: INFECTION
     Route: 048
     Dates: start: 20160309, end: 20160318

REACTIONS (5)
  - Fatigue [None]
  - Heart rate abnormal [None]
  - Chest pain [None]
  - Chest discomfort [None]
  - Tachycardia [None]

NARRATIVE: CASE EVENT DATE: 20160325
